FAERS Safety Report 23663798 (Version 1)
Quarter: 2024Q1

REPORT INFORMATION
  Report Type: Spontaneous
  Country: BR (occurrence: BR)
  Receive Date: 20240322
  Receipt Date: 20240322
  Transmission Date: 20240410
  Serious: Yes (Other)
  Sender: FDA-Public Use
  Company Number: BR-ORGANON-O2403BRA002019

PATIENT
  Age: 18 Year
  Sex: Female
  Weight: 64 kg

DRUGS (1)
  1. ETONOGESTREL [Suspect]
     Active Substance: ETONOGESTREL
     Indication: Contraception
     Dosage: 1 IMPLANT IN LEFT ARM
     Route: 059
     Dates: start: 20231003

REACTIONS (7)
  - Heavy menstrual bleeding [Not Recovered/Not Resolved]
  - Cardiomyopathy [Unknown]
  - Implant site pain [Unknown]
  - Implant site swelling [Unknown]
  - Nausea [Unknown]
  - Dysmenorrhoea [Unknown]
  - Headache [Unknown]

NARRATIVE: CASE EVENT DATE: 20231020
